FAERS Safety Report 14969335 (Version 1)
Quarter: 2018Q2

REPORT INFORMATION
  Report Type: Report from Study
  Country: FR (occurrence: FR)
  Receive Date: 20180604
  Receipt Date: 20180604
  Transmission Date: 20180711
  Serious: Yes (Other)
  Sender: FDA-Public Use
  Company Number: FR-PFIZER INC-2018219657

PATIENT
  Age: 52 Year
  Sex: Male

DRUGS (10)
  1. IRINOTECAN HCL [Suspect]
     Active Substance: IRINOTECAN HYDROCHLORIDE
     Indication: COLORECTAL CANCER METASTATIC
     Dosage: 300 MG, CYCLIC
     Route: 041
     Dates: start: 20150730, end: 20150730
  2. IRINOTECAN HCL [Suspect]
     Active Substance: IRINOTECAN HYDROCHLORIDE
     Dosage: 300 MG, CYCLIC
     Route: 041
     Dates: start: 20160301, end: 20160301
  3. FLUOROURACIL. [Suspect]
     Active Substance: FLUOROURACIL
     Dosage: 800 MG, CYCLIC
     Route: 040
     Dates: start: 20150730, end: 20150730
  4. FLUOROURACIL. [Suspect]
     Active Substance: FLUOROURACIL
     Dosage: 4800 MG, CYCLIC
     Route: 041
     Dates: start: 20160301
  5. CALCIUM FOLINATE [Suspect]
     Active Substance: LEUCOVORIN CALCIUM
     Dosage: 400 MG, CYCLIC
     Route: 041
     Dates: start: 20160301, end: 20160301
  6. ZALTRAP [Suspect]
     Active Substance: ZIV-AFLIBERCEPT
     Indication: COLORECTAL CANCER METASTATIC
     Dosage: 365 MG, CYCLIC
     Route: 041
     Dates: start: 20150730, end: 20150730
  7. ZALTRAP [Suspect]
     Active Substance: ZIV-AFLIBERCEPT
     Dosage: 380 MG, CYCLIC
     Route: 041
     Dates: start: 20160301, end: 20160301
  8. FLUOROURACIL. [Suspect]
     Active Substance: FLUOROURACIL
     Dosage: 800 MG, CYCLIC
     Route: 040
     Dates: start: 20160301, end: 20160301
  9. CALCIUM FOLINATE [Suspect]
     Active Substance: LEUCOVORIN CALCIUM
     Indication: COLORECTAL CANCER METASTATIC
     Dosage: 400 MG, CYCLIC
     Route: 041
     Dates: start: 20150730, end: 20150730
  10. FLUOROURACIL. [Suspect]
     Active Substance: FLUOROURACIL
     Indication: COLORECTAL CANCER METASTATIC
     Dosage: 4800 MG, CYCLIC
     Route: 041
     Dates: start: 20150730

REACTIONS (1)
  - Anal fistula [Recovering/Resolving]

NARRATIVE: CASE EVENT DATE: 20160301
